FAERS Safety Report 6600304-8 (Version None)
Quarter: 2010Q1

REPORT INFORMATION
  Report Type: 
  Country: None (occurrence: None)
  Receive Date: 20100224
  Receipt Date: 20100218
  Transmission Date: 20100710
  Serious: Yes (Hospitalization)
  Sender: FDA-Public Use
  Company Number: US-GILEAD-2010-0027177

PATIENT
  Sex: Male
  Weight: 137.56 kg

DRUGS (15)
  1. LETAIRIS [Suspect]
     Indication: PULMONARY ARTERIAL HYPERTENSION
     Route: 048
     Dates: start: 20100120, end: 20100212
  2. COREG [Concomitant]
  3. NORVASC [Concomitant]
  4. IMDUR [Concomitant]
  5. HYDRALAZINE HCL [Concomitant]
  6. BUMEX [Concomitant]
  7. WARFARIN SODIUM [Concomitant]
  8. PLAVIX [Concomitant]
  9. LIPITOR [Concomitant]
  10. ALLOPURINOL [Concomitant]
  11. AMBIEN [Concomitant]
  12. NOVOLOG [Concomitant]
  13. LANTUS [Concomitant]
  14. FERROUS SULFATE TAB [Concomitant]
  15. ASPIRIN [Concomitant]

REACTIONS (4)
  - ANAEMIA [None]
  - CARDIAC FAILURE CONGESTIVE [None]
  - DYSPNOEA [None]
  - RENAL FAILURE [None]
